FAERS Safety Report 10873913 (Version 2)
Quarter: 2015Q2

REPORT INFORMATION
  Report Type: Spontaneous
  Country: US (occurrence: US)
  Receive Date: 20150227
  Receipt Date: 20150508
  Transmission Date: 20150821
  Serious: Yes (Hospitalization, Other)
  Sender: FDA-Public Use
  Company Number: US-PFIZER INC-2015072114

PATIENT
  Age: 72 Year
  Sex: Male

DRUGS (5)
  1. DEPO-TESTOSTERONE [Suspect]
     Active Substance: TESTOSTERONE CYPIONATE
     Indication: HORMONE REPLACEMENT THERAPY
     Dosage: UNK, INFREQUENT
     Dates: end: 20140219
  2. DEPO-TESTOSTERONE [Suspect]
     Active Substance: TESTOSTERONE CYPIONATE
     Indication: BLOOD TESTOSTERONE DECREASED
     Dosage: UNK, EVERY OTHER WEEK
     Dates: start: 20131001
  3. DEPO-TESTOSTERONE [Suspect]
     Active Substance: TESTOSTERONE CYPIONATE
     Indication: TESTICULAR PAIN
  4. DEPO-TESTOSTERONE [Suspect]
     Active Substance: TESTOSTERONE CYPIONATE
     Indication: ASTHENIA
  5. DEPO-TESTOSTERONE [Suspect]
     Active Substance: TESTOSTERONE CYPIONATE
     Indication: OESTROGEN DEFICIENCY

REACTIONS (3)
  - Acute myocardial infarction [Unknown]
  - Dyspnoea [Not Recovered/Not Resolved]
  - Heart rate irregular [Not Recovered/Not Resolved]

NARRATIVE: CASE EVENT DATE: 20140321
